FAERS Safety Report 4780918-0 (Version None)
Quarter: 2005Q3

REPORT INFORMATION
  Report Type: 
  Country: None (occurrence: None)
  Receive Date: 20050926
  Receipt Date: 20050926
  Transmission Date: 20060218
  Serious: No
  Sender: FDA-Public Use
  Company Number: None

PATIENT
  Sex: Female
  Weight: 114.76 kg

DRUGS (13)
  1. REMICADE [Suspect]
     Indication: RHEUMATOID ARTHRITIS
     Dosage: 3-5 MG/KG EVERY 8 WEEKS IV DRIP
     Route: 041
     Dates: start: 20011221, end: 20030707
  2. METHOTREXATE [Concomitant]
  3. AVANDIA [Concomitant]
  4. DIGITEK [Concomitant]
  5. FOLIC ACID [Concomitant]
  6. LASIX [Concomitant]
  7. GLUCOPHAGE [Concomitant]
  8. LIPITOR [Concomitant]
  9. OXYTROL [Concomitant]
  10. PREDNISONE [Concomitant]
  11. BIPAP [Concomitant]
  12. RELAFEN [Concomitant]
  13. VERELAN [Concomitant]

REACTIONS (2)
  - LACRIMAL DUCT NEOPLASM [None]
  - LYMPHOMA [None]
